FAERS Safety Report 21362532 (Version 1)
Quarter: 2022Q3

REPORT INFORMATION
  Report Type: Spontaneous
  Country: GB (occurrence: GB)
  Receive Date: 20220922
  Receipt Date: 20220922
  Transmission Date: 20221026
  Serious: Yes (Disabling, Other)
  Sender: FDA-Public Use
  Company Number: GB-MHRA-MED-202209111313389320-FZJVQ

PATIENT
  Age: 49 Year
  Sex: Female

DRUGS (4)
  1. CARVEDILOL [Suspect]
     Active Substance: CARVEDILOL
     Indication: Adverse drug reaction
     Dosage: 37.5 GRAM, ONCE A DAY, (IN 2 DOSES)
     Route: 065
     Dates: start: 20220801
  2. BUMETANIDE [Concomitant]
     Active Substance: BUMETANIDE
     Indication: Product used for unknown indication
     Dosage: UNK
     Route: 065
  3. PERINDOPRIL [Concomitant]
     Active Substance: PERINDOPRIL
     Indication: Product used for unknown indication
     Dosage: UNK
     Route: 065
  4. SPIRONOLACTONE [Concomitant]
     Active Substance: SPIRONOLACTONE

REACTIONS (15)
  - Hypervolaemia [Recovering/Resolving]
  - Middle ear effusion [Recovering/Resolving]
  - Vomiting [Recovered/Resolved]
  - Pruritus [Recovering/Resolving]
  - Alopecia [Recovering/Resolving]
  - Dyspepsia [Recovering/Resolving]
  - Dry mouth [Recovered/Resolved]
  - Poor quality sleep [Recovering/Resolving]
  - Dyspnoea [Recovering/Resolving]
  - Peripheral coldness [Recovering/Resolving]
  - Dizziness postural [Recovered/Resolved]
  - Weight increased [Recovering/Resolving]
  - Cough [Recovering/Resolving]
  - Diarrhoea [Recovered/Resolved]
  - Decreased appetite [Recovering/Resolving]

NARRATIVE: CASE EVENT DATE: 20220801
